FAERS Safety Report 14896888 (Version 1)
Quarter: 2018Q2

REPORT INFORMATION
  Report Type: Spontaneous
  Country: US (occurrence: US)
  Receive Date: 20180427
  Receipt Date: 20180427
  Transmission Date: 20180711
  Serious: Yes (Other)
  Sender: FDA-Public Use
  Company Number: None

PATIENT
  Age: 47 Year
  Sex: Female
  Weight: 57.6 kg

DRUGS (11)
  1. FERROUS SULFATE. [Concomitant]
     Active Substance: FERROUS SULFATE
  2. MOMETASONE [Concomitant]
     Active Substance: MOMETASONE
  3. APAP [Concomitant]
     Active Substance: ACETAMINOPHEN
  4. MULTIVITAMINS [Concomitant]
     Active Substance: VITAMINS
  5. XARELTO [Concomitant]
     Active Substance: RIVAROXABAN
  6. MONTELUKAST [Concomitant]
     Active Substance: MONTELUKAST SODIUM
  7. CETIRIZINE [Concomitant]
     Active Substance: CETIRIZINE HYDROCHLORIDE
  8. PEPCID [Concomitant]
     Active Substance: FAMOTIDINE
  9. CAPECITABINE. [Suspect]
     Active Substance: CAPECITABINE
     Indication: COLON CANCER
     Route: 048
  10. ONDANSETRON [Concomitant]
     Active Substance: ONDANSETRON
  11. SENNA-DOCUSATE [Concomitant]
     Active Substance: DOCUSATE SODIUM\SENNOSIDES

REACTIONS (1)
  - Palmar-plantar erythrodysaesthesia syndrome [None]
